FAERS Safety Report 23187700 (Version 1)
Quarter: 2023Q4

REPORT INFORMATION
  Report Type: Spontaneous
  Country: US (occurrence: US)
  Receive Date: 20231115
  Receipt Date: 20231115
  Transmission Date: 20240110
  Serious: No
  Sender: FDA-Public Use
  Company Number: US-NOVOPROD-1015221

PATIENT
  Sex: Female

DRUGS (1)
  1. NOVOLOG [Suspect]
     Active Substance: INSULIN ASPART
     Indication: Product used for unknown indication
     Dosage: 40 UNITS IN AM 20 UNITS IN THE PM
     Route: 058
     Dates: start: 20230107

REACTIONS (2)
  - Urticaria [Recovered/Resolved]
  - Contusion [Not Recovered/Not Resolved]
